FAERS Safety Report 8425233-9 (Version None)
Quarter: 2012Q2

REPORT INFORMATION
  Report Type: 
  Country: None (occurrence: None)
  Receive Date: 20120611
  Receipt Date: 20120530
  Transmission Date: 20120825
  Serious: Yes (Other)
  Sender: FDA-Public Use
  Company Number: JP-JNJFOC-20110803818

PATIENT
  Sex: Male
  Weight: 42.2 kg

DRUGS (71)
  1. FENTANYL CITRATE [Suspect]
     Route: 041
     Dates: start: 20110506, end: 20110510
  2. FENTANYL CITRATE [Suspect]
     Route: 041
     Dates: start: 20110522, end: 20110522
  3. FENTANYL CITRATE [Suspect]
     Route: 041
     Dates: start: 20110523, end: 20110604
  4. FENTANYL CITRATE [Suspect]
     Route: 041
     Dates: start: 20110511, end: 20110514
  5. FENTANYL CITRATE [Suspect]
     Route: 041
     Dates: start: 20110506, end: 20110510
  6. FENTANYL CITRATE [Suspect]
     Indication: CANCER PAIN
     Route: 041
     Dates: start: 20110414, end: 20110415
  7. FENTANYL CITRATE [Suspect]
     Dosage: 33 MCG AT ONE TIME AS RESCUE DRUG WITH LOCKOUT INTERVALS OF 2 HOURS
     Route: 041
  8. FENTANYL CITRATE [Suspect]
     Route: 062
     Dates: start: 20110523, end: 20110526
  9. FENTANYL CITRATE [Suspect]
     Route: 062
     Dates: start: 20110609, end: 20110609
  10. OMEPRAZOLE [Concomitant]
     Indication: PRODUCT USED FOR UNKNOWN INDICATION
     Route: 065
  11. NONSTEROIDAL ANTIINFLAMMATORY DRUGS [Concomitant]
     Indication: HEADACHE
     Route: 065
  12. FENTANYL CITRATE [Suspect]
     Route: 062
     Dates: start: 20110522, end: 20110522
  13. FENTANYL CITRATE [Suspect]
     Route: 062
     Dates: start: 20110523, end: 20110526
  14. FENTANYL CITRATE [Suspect]
     Route: 062
     Dates: start: 20110527, end: 20110607
  15. FENTANYL CITRATE [Suspect]
     Dosage: 25 MCG/HR ESTIMATED DAILY ABSORPTION 0.6 MG
     Route: 062
  16. FENTANYL CITRATE [Suspect]
     Route: 062
     Dates: start: 20110522, end: 20110522
  17. FENTANYL CITRATE [Suspect]
     Dosage: 25 MCG/HR ESTIMATED DAILY ABSORPTION 0.6 MG
     Route: 062
  18. AMLODIPINE [Concomitant]
     Indication: PRODUCT USED FOR UNKNOWN INDICATION
     Route: 065
  19. CYTARABINE [Concomitant]
     Indication: ACUTE MYELOID LEUKAEMIA RECURRENT
     Route: 037
  20. FENTANYL CITRATE [Suspect]
     Route: 041
     Dates: start: 20110515, end: 20110521
  21. FENTANYL CITRATE [Suspect]
     Dosage: CONTINUOUS INTRAVENOUS INFUSION OF FENTANYL CITRATE 400 MCG/DAY CONCOMITANTLY
     Route: 041
  22. FENTANYL CITRATE [Suspect]
     Dosage: 33 MCG AT ONE TIME AS RESCUE DRUG WITH LOCKOUT INTERVALS OF 2 HOURS
     Route: 041
  23. FENTANYL CITRATE [Suspect]
     Route: 041
     Dates: start: 20110511, end: 20110514
  24. FENTANYL CITRATE [Suspect]
     Route: 041
     Dates: start: 20110515, end: 20110521
  25. FENTANYL CITRATE [Suspect]
     Dosage: 25 MCG/HR ESTIMATED DAILY ABSORPTION 0.6 MG
     Route: 062
  26. FENTANYL CITRATE [Suspect]
     Route: 062
     Dates: start: 20110522, end: 20110522
  27. ETIZOLAM [Concomitant]
     Indication: PRODUCT USED FOR UNKNOWN INDICATION
     Route: 065
  28. FENTANYL CITRATE [Suspect]
     Indication: BACK PAIN
     Dosage: CONTINUOUS INTRAVENOUS INFUSION OF FENTANYL CITRATE 400 MCG/DAY CONCOMITANTLY
     Route: 041
  29. FENTANYL CITRATE [Suspect]
     Dosage: 33 MCG AT ONE TIME AS RESCUE DRUG WITH LOCKOUT INTERVALS OF 2 HOURS
     Route: 041
  30. FENTANYL CITRATE [Suspect]
     Route: 041
     Dates: start: 20110506, end: 20110510
  31. FENTANYL CITRATE [Suspect]
     Indication: LEUKAEMIA
     Route: 041
     Dates: start: 20110523, end: 20110604
  32. FENTANYL CITRATE [Suspect]
     Route: 041
     Dates: start: 20110522, end: 20110522
  33. FENTANYL CITRATE [Suspect]
     Route: 041
     Dates: start: 20110511, end: 20110514
  34. FENTANYL CITRATE [Suspect]
     Route: 041
     Dates: start: 20110506, end: 20110510
  35. FENTANYL CITRATE [Suspect]
     Route: 041
     Dates: start: 20110406, end: 20110413
  36. FENTANYL-100 [Suspect]
     Indication: METASTASIS
     Route: 062
     Dates: start: 20110416, end: 20110505
  37. FENTANYL-100 [Suspect]
     Indication: LEUKAEMIA
     Route: 062
     Dates: start: 20110416, end: 20110505
  38. FENTANYL CITRATE [Suspect]
     Route: 062
     Dates: start: 20110608, end: 20110608
  39. FENTANYL CITRATE [Suspect]
     Dosage: 33 MCG AT ONE TIME AS RESCUE DRUG WITH LOCKOUT INTERVALS OF 2 HOURS
     Route: 041
  40. FENTANYL CITRATE [Suspect]
     Route: 041
     Dates: start: 20110511, end: 20110514
  41. FENTANYL CITRATE [Suspect]
     Route: 041
     Dates: start: 20110515, end: 20110521
  42. FENTANYL CITRATE [Suspect]
     Dosage: CONTINUOUS INTRAVENOUS INFUSION OF FENTANYL CITRATE 400 MCG/DAY CONCOMITANTLY
     Route: 041
  43. FENTANYL CITRATE [Suspect]
     Dosage: 700 MCG/DAY FOR APPROXIMATELY IN 2 WEEKS
     Route: 041
  44. FENTANYL-100 [Suspect]
     Indication: BACK PAIN
     Route: 062
     Dates: start: 20110416, end: 20110505
  45. MORPHINE HCL ELIXIR [Suspect]
     Indication: BACK PAIN
     Route: 065
  46. FENTANYL CITRATE [Suspect]
     Dosage: 700 MCG/DAY FOR APPROXIMATELY IN 2 WEEKS
     Route: 041
  47. FENTANYL CITRATE [Suspect]
     Route: 041
     Dates: start: 20110523, end: 20110604
  48. FENTANYL CITRATE [Suspect]
     Route: 041
     Dates: start: 20110522, end: 20110522
  49. FENTANYL CITRATE [Suspect]
     Route: 041
     Dates: start: 20110414, end: 20110415
  50. FENTANYL CITRATE [Suspect]
     Route: 041
     Dates: start: 20110515, end: 20110521
  51. FENTANYL CITRATE [Suspect]
     Route: 041
     Dates: start: 20110406, end: 20110413
  52. FENTANYL CITRATE [Suspect]
     Dosage: CONTINUOUS INTRAVENOUS INFUSION OF FENTANYL CITRATE 400 MCG/DAY CONCOMITANTLY
     Route: 041
  53. FENTANYL CITRATE [Suspect]
     Route: 041
     Dates: start: 20110523, end: 20110604
  54. FENTANYL CITRATE [Suspect]
     Route: 062
     Dates: start: 20110608, end: 20110608
  55. FENTANYL CITRATE [Suspect]
     Route: 062
     Dates: start: 20110527, end: 20110607
  56. FENTANYL CITRATE [Suspect]
     Route: 062
     Dates: start: 20110608, end: 20110608
  57. HYDROCORTISONE [Concomitant]
     Indication: ACUTE MYELOID LEUKAEMIA RECURRENT
     Route: 037
  58. RADIOTHERAPY [Concomitant]
     Indication: ACUTE MYELOID LEUKAEMIA RECURRENT
     Route: 065
  59. PENTAZOCINE LACTATE [Concomitant]
     Indication: HEADACHE
     Route: 065
  60. FENTANYL CITRATE [Suspect]
     Route: 041
     Dates: start: 20110406, end: 20110413
  61. FENTANYL CITRATE [Suspect]
     Route: 041
     Dates: start: 20110414, end: 20110415
  62. FENTANYL CITRATE [Suspect]
     Indication: METASTASIS
     Route: 041
     Dates: start: 20110406, end: 20110413
  63. FENTANYL CITRATE [Suspect]
     Dosage: 700 MCG/DAY FOR APPROXIMATELY IN 2 WEEKS
     Route: 041
  64. FENTANYL CITRATE [Suspect]
     Route: 041
     Dates: start: 20110522, end: 20110522
  65. FENTANYL CITRATE [Suspect]
     Route: 041
     Dates: start: 20110414, end: 20110415
  66. FENTANYL CITRATE [Suspect]
     Dosage: 700 MCG/DAY FOR APPROXIMATELY IN 2 WEEKS
     Route: 041
  67. FENTANYL CITRATE [Suspect]
     Route: 062
     Dates: start: 20110609, end: 20110609
  68. FENTANYL CITRATE [Suspect]
     Route: 062
     Dates: start: 20110527, end: 20110607
  69. FENTANYL CITRATE [Suspect]
     Route: 062
     Dates: start: 20110609, end: 20110609
  70. FENTANYL CITRATE [Suspect]
     Route: 062
     Dates: start: 20110523, end: 20110526
  71. METHOTREXATE [Concomitant]
     Indication: ACUTE MYELOID LEUKAEMIA RECURRENT
     Route: 037

REACTIONS (2)
  - DRUG DEPENDENCE [None]
  - WITHDRAWAL SYNDROME [None]
